FAERS Safety Report 5502442-X (Version None)
Quarter: 2007Q4

REPORT INFORMATION
  Report Type: 
  Country: None (occurrence: None)
  Receive Date: 20071030
  Receipt Date: 20071019
  Transmission Date: 20080405
  Serious: Yes (Disabling)
  Sender: FDA-Public Use
  Company Number: JP-PFIZER INC-2007078638

PATIENT
  Sex: Female
  Weight: 62 kg

DRUGS (11)
  1. CELECOX [Suspect]
     Indication: OSTEOARTHRITIS
     Dosage: DAILY DOSE:200MG-FREQ:FREQUENCY: QD
     Route: 048
  2. CELECOX [Suspect]
  3. VALSARTAN [Suspect]
     Indication: HYPERTENSION
     Route: 048
  4. NIFEDIPINE [Suspect]
     Indication: HYPERTENSION
     Route: 048
  5. GLYBURIDE [Concomitant]
     Indication: DIABETES MELLITUS
     Route: 048
  6. ALLOPURINOL [Concomitant]
     Indication: HYPERURICAEMIA
     Route: 048
  7. BASEN [Concomitant]
     Indication: DIABETES MELLITUS
     Route: 048
  8. ALFAROL [Concomitant]
     Indication: OSTEOPOROSIS
     Route: 048
  9. CONIEL [Concomitant]
     Route: 048
  10. ADETPHOS [Concomitant]
     Route: 048
  11. GLORIAMIN [Concomitant]
     Route: 048

REACTIONS (3)
  - HEAT EXHAUSTION [None]
  - HYPOTENSION [None]
  - VOLUME BLOOD DECREASED [None]
